FAERS Safety Report 5909465-7 (Version None)
Quarter: 2008Q4

REPORT INFORMATION
  Report Type: 
  Country: None (occurrence: None)
  Receive Date: 20081001
  Receipt Date: 20080923
  Transmission Date: 20090506
  Serious: Yes (Life-Threatening, Hospitalization)
  Sender: FDA-Public Use
  Company Number: GXKR2008TR09114

PATIENT
  Age: 3 Year
  Sex: Female

DRUGS (1)
  1. ACETYLSALICYLIC ACID SRT [Suspect]

REACTIONS (12)
  - ACCIDENTAL OVERDOSE [None]
  - ACIDOSIS [None]
  - DEHYDRATION [None]
  - DIABETIC KETOACIDOSIS [None]
  - HAEMOGLOBIN DECREASED [None]
  - HYPERGLYCAEMIA [None]
  - KUSSMAUL RESPIRATION [None]
  - LOSS OF CONSCIOUSNESS [None]
  - POLYDIPSIA [None]
  - POLYURIA [None]
  - TACHYCARDIA [None]
  - THERAPEUTIC AGENT TOXICITY [None]
